FAERS Safety Report 17885044 (Version 2)
Quarter: 2020Q3

REPORT INFORMATION
  Report Type: Spontaneous
  Country: US (occurrence: US)
  Receive Date: 20200611
  Receipt Date: 20200817
  Transmission Date: 20201103
  Serious: No
  Sender: FDA-Public Use
  Company Number: US-SA-2020SA136123

PATIENT

DRUGS (1)
  1. DUPIXENT [Suspect]
     Active Substance: DUPILUMAB
     Indication: ASTHMA
     Dosage: 300 MG, QOW
     Route: 058

REACTIONS (9)
  - Swollen tongue [Unknown]
  - Productive cough [Unknown]
  - Aphonia [Unknown]
  - Oropharyngeal discomfort [Unknown]
  - Asthma [Unknown]
  - Throat tightness [Unknown]
  - Cough [Unknown]
  - Ectropion [Unknown]
  - Respiratory tract congestion [Unknown]
